FAERS Safety Report 15627827 (Version 2)
Quarter: 2019Q1

REPORT INFORMATION
  Report Type: Report from Study
  Country: US (occurrence: US)
  Receive Date: 20181116
  Receipt Date: 20190218
  Transmission Date: 20190417
  Serious: Yes (Other)
  Sender: FDA-Public Use
  Company Number: PHEH2018US048100

PATIENT
  Sex: Male

DRUGS (1)
  1. ENTRESTO [Suspect]
     Active Substance: SACUBITRIL\VALSARTAN
     Indication: PRODUCT USED FOR UNKNOWN INDICATION
     Dosage: 1 DF (49MG SACUBITRIL AND 51MG VALSARTAN), UNK
     Route: 048

REACTIONS (5)
  - Cerebrovascular accident [Unknown]
  - Dyspnoea [Unknown]
  - Upper respiratory tract congestion [Unknown]
  - Pulmonary congestion [Unknown]
  - Malaise [Unknown]
